FAERS Safety Report 4414368-3 (Version None)
Quarter: 2004Q3

REPORT INFORMATION
  Report Type: 
  Country: None (occurrence: None)
  Receive Date: 20040701
  Receipt Date: 20040319
  Transmission Date: 20050211
  Serious: Yes (Life-Threatening, Hospitalization, Disabling)
  Sender: FDA-Public Use
  Company Number: VISP-PR-0403S-0123(0)

PATIENT
  Age: 64 Year
  Sex: Male
  Weight: 84.369 kg

DRUGS (5)
  1. VISIPAQUE [Suspect]
     Indication: AORTIC ANEURYSM
     Dosage: 150 ML, SINGLE DOSE, I.V.
     Route: 042
     Dates: start: 20040319, end: 20040319
  2. LOVASTATIN [Concomitant]
  3. LISINOPRIL [Concomitant]
  4. NITROGLYCERIN [Concomitant]
  5. KETOCONAZOLE [Concomitant]

REACTIONS (1)
  - ANAPHYLACTIC SHOCK [None]
